FAERS Safety Report 7457531-X (Version None)
Quarter: 2011Q2

REPORT INFORMATION
  Report Type: 
  Country: None (occurrence: None)
  Receive Date: 20110504
  Receipt Date: 20110428
  Transmission Date: 20111010
  Serious: Yes (Other)
  Sender: FDA-Public Use
  Company Number: FR-BRISTOL-MYERS SQUIBB COMPANY-15709587

PATIENT
  Age: 39 Year
  Sex: Female

DRUGS (3)
  1. REYATAZ [Suspect]
     Route: 048
     Dates: start: 20110316
  2. TRUVADA [Suspect]
     Route: 048
     Dates: start: 20110316
  3. NORVIR [Suspect]
     Dates: start: 20110316

REACTIONS (3)
  - ABORTION SPONTANEOUS [None]
  - PREGNANCY [None]
  - FALLOPIAN TUBE OBSTRUCTION [None]
